FAERS Safety Report 6894497-5 (Version None)
Quarter: 2010Q3

REPORT INFORMATION
  Report Type: 
  Country: None (occurrence: None)
  Receive Date: 20100802
  Receipt Date: 20100727
  Transmission Date: 20110219
  Serious: Yes (Hospitalization, Other)
  Sender: FDA-Public Use
  Company Number: KR-BAYER-201016678GPV

PATIENT
  Age: 68 Year
  Sex: Male
  Weight: 60 kg

DRUGS (28)
  1. SORAFENIB [Suspect]
     Indication: HEPATIC NEOPLASM MALIGNANT
     Dosage: TOTAL DAILY DOSE: 400 MG  UNIT DOSE: 200 MG
     Route: 048
     Dates: start: 20100218, end: 20100220
  2. PLACEBO [Suspect]
     Indication: HEPATIC NEOPLASM MALIGNANT
     Dosage: TOTAL DAILY DOSE: 100 MG
     Route: 048
     Dates: start: 20100218, end: 20100220
  3. TAMIPOOL [Concomitant]
     Indication: DECREASED APPETITE
     Dosage: 2 VIAL
     Route: 042
     Dates: start: 20100220, end: 20100221
  4. TAMIPOOL [Concomitant]
     Dosage: 3 VIAL
     Route: 042
     Dates: start: 20100222, end: 20100222
  5. TAMIPOOL [Concomitant]
     Dosage: 2 VIAL
     Route: 042
     Dates: start: 20100223, end: 20100223
  6. PANTOPRAZOLE [Concomitant]
     Route: 042
     Dates: start: 20100220, end: 20100220
  7. PANTOPRAZOLE [Concomitant]
     Route: 042
     Dates: start: 20100222, end: 20100222
  8. PANTOPRAZOLE [Concomitant]
     Route: 042
     Dates: start: 20100222, end: 20100223
  9. PANTOPRAZOLE [Concomitant]
     Route: 042
     Dates: start: 20100221, end: 20100221
  10. LAMIVUDINE [Concomitant]
     Indication: HEPATITIS B
     Route: 048
     Dates: start: 20080601
  11. ADEFOVIR DIPIVOXIL KIT [Concomitant]
     Indication: HEPATITIS B
     Route: 048
     Dates: start: 20090402
  12. AROMIN [Concomitant]
     Indication: HEPATITIS B
     Route: 048
     Dates: start: 20090402
  13. FERROUS SULFATE [Concomitant]
     Indication: ANAEMIA
     Route: 048
     Dates: start: 20090402, end: 20100122
  14. SMECTA [Concomitant]
     Indication: DIARRHOEA
     Route: 048
     Dates: start: 20091201
  15. DEHYDRO CODEIN [Concomitant]
     Indication: COUGH
     Route: 048
     Dates: start: 20091201, end: 20091203
  16. LACTOBACILLUS [Concomitant]
     Indication: DIARRHOEA
     Route: 048
     Dates: start: 20100116
  17. NIFUROXAZIDE [Concomitant]
     Indication: DIARRHOEA
     Route: 048
     Dates: start: 20100116, end: 20100117
  18. FEROBA [Concomitant]
     Indication: ANAEMIA
     Route: 048
     Dates: start: 20100225
  19. FUROSEMIDE [Concomitant]
     Route: 042
     Dates: start: 20100223, end: 20100223
  20. FUROSEMIDE [Concomitant]
     Route: 048
     Dates: start: 20100227
  21. FUROSEMIDE [Concomitant]
     Route: 048
     Dates: start: 20100224, end: 20100226
  22. FUROSEMIDE [Concomitant]
     Route: 042
     Dates: start: 20100222, end: 20100222
  23. PHYTONADIONE [Concomitant]
     Route: 042
     Dates: start: 20100222, end: 20100222
  24. PHYTONADIONE [Concomitant]
     Route: 042
     Dates: start: 20100223, end: 20100223
  25. PETHIDINE [Concomitant]
     Route: 042
     Dates: start: 20100223, end: 20100224
  26. CHLORHEXIDINE [Concomitant]
     Dosage: 0.1%  GARGLE
     Route: 048
     Dates: start: 20100224, end: 20100315
  27. CHLORPHENIRAMINE [Concomitant]
     Route: 042
     Dates: start: 20100223, end: 20100223
  28. CIPROFLOXACIN [Concomitant]
     Route: 048
     Dates: start: 20100224, end: 20100304

REACTIONS (2)
  - GASTROINTESTINAL HAEMORRHAGE [None]
  - HEPATIC ENCEPHALOPATHY [None]
